FAERS Safety Report 21023494 (Version 1)
Quarter: 2022Q2

REPORT INFORMATION
  Report Type: Spontaneous
  Country: US (occurrence: US)
  Receive Date: 20220629
  Receipt Date: 20220629
  Transmission Date: 20220721
  Serious: Yes (Hospitalization)
  Sender: FDA-Public Use
  Company Number: US-GW PHARMA-2022-US-021632

PATIENT
  Sex: Male

DRUGS (2)
  1. EPIDIOLEX [Suspect]
     Active Substance: CANNABIDIOL
     Indication: Lennox-Gastaut syndrome
     Dosage: 1.8ML VIA GTUBE TWICE A DAY
  2. EPIDIOLEX [Suspect]
     Active Substance: CANNABIDIOL
     Indication: Crohn^s disease

REACTIONS (2)
  - Hospitalisation [Unknown]
  - Off label use [Unknown]
